FAERS Safety Report 7213344-5 (Version None)
Quarter: 2010Q4

REPORT INFORMATION
  Report Type: 
  Country: None (occurrence: None)
  Receive Date: 20101126
  Receipt Date: 20091204
  Transmission Date: 20110411
  Serious: Yes (Disabling)
  Sender: FDA-Public Use
  Company Number: WAES 0705USA01335

PATIENT
  Age: 44 Year
  Sex: Female
  Weight: 74.3899 kg

DRUGS (5)
  1. FOSAMAX [Suspect]
     Indication: OSTEOPENIA
     Dosage: 5 MG/PO, 10 MG/PO, 70 MG/WKY/PO, 70 MG/WKY, PO
     Route: 048
     Dates: start: 20000523, end: 20010319
  2. FOSAMAX [Suspect]
     Indication: OSTEOPENIA
     Dosage: 5 MG/PO, 10 MG/PO, 70 MG/WKY/PO, 70 MG/WKY, PO
     Route: 048
     Dates: end: 20041101
  3. FOSAMAX [Suspect]
     Indication: OSTEOPENIA
     Dosage: 5 MG/PO, 10 MG/PO, 70 MG/WKY/PO, 70 MG/WKY, PO
     Route: 048
     Dates: start: 20000201
  4. FOSAMAX [Suspect]
     Indication: OSTEOPENIA
     Dosage: 5 MG/PO, 10 MG/PO, 70 MG/WKY/PO, 70 MG/WKY, PO
     Route: 048
     Dates: start: 20041112
  5. PREMARIN [Concomitant]

REACTIONS (19)
  - ADVERSE EVENT [None]
  - ALOPECIA [None]
  - ANXIETY [None]
  - ARTHRITIS [None]
  - CARDIAC MURMUR [None]
  - CELLULITIS [None]
  - DENTAL CARIES [None]
  - FATIGUE [None]
  - HOT FLUSH [None]
  - LOOSE TOOTH [None]
  - PAIN IN JAW [None]
  - RASH [None]
  - RESORPTION BONE INCREASED [None]
  - SWELLING [None]
  - TOOTH DISORDER [None]
  - TOOTH FRACTURE [None]
  - TOOTH INJURY [None]
  - TOOTH LOSS [None]
  - VULVOVAGINAL DRYNESS [None]
